FAERS Safety Report 8611999-1 (Version None)
Quarter: 2012Q3

REPORT INFORMATION
  Report Type: 
  Country: None (occurrence: None)
  Receive Date: 20120822
  Receipt Date: 20120816
  Transmission Date: 20120928
  Serious: Yes (Hospitalization)
  Sender: FDA-Public Use
  Company Number: US-GLAXOSMITHKLINE-A0989882A

PATIENT
  Age: 79 Year
  Sex: Male

DRUGS (10)
  1. FLUTICASONE PROPIONATE/SALMETEROL [Suspect]
     Indication: CHRONIC OBSTRUCTIVE PULMONARY DISEASE
     Dosage: 1PUFF TWICE PER DAY
     Route: 055
  2. MOTRIN [Concomitant]
  3. LOSARTAN POTASSIUM [Concomitant]
  4. ALBUTEROL SULFATE AND IPRATROPIUM BROMIDE [Concomitant]
  5. COMBIVENT [Concomitant]
  6. HYTRIN [Concomitant]
  7. NORVASC [Concomitant]
  8. PROVENTIL [Concomitant]
  9. GLIMEPIRIDE [Concomitant]
  10. CELEXA [Concomitant]

REACTIONS (4)
  - EYE MOVEMENT DISORDER [None]
  - PNEUMONIA [None]
  - SINUSITIS [None]
  - OXYGEN SATURATION DECREASED [None]
